FAERS Safety Report 22635331 (Version 1)
Quarter: 2023Q2

REPORT INFORMATION
  Report Type: Spontaneous
  Country: US (occurrence: None)
  Receive Date: 20230622
  Receipt Date: 20230622
  Transmission Date: 20230722
  Serious: Yes (Other)
  Sender: FDA-Public Use
  Company Number: None

PATIENT
  Age: 52 Year
  Sex: Male
  Weight: 89.1 kg

DRUGS (1)
  1. GAMMAPLEX [Suspect]
     Active Substance: HUMAN IMMUNOGLOBULIN G
     Indication: Myasthenia gravis
     Dosage: FREQUENCY : DAILY;?
     Route: 041
     Dates: start: 20230608

REACTIONS (4)
  - Malaise [None]
  - Infusion related reaction [None]
  - Liquid product physical issue [None]
  - Suspected product quality issue [None]

NARRATIVE: CASE EVENT DATE: 20230608
